FAERS Safety Report 10159663 (Version 2)
Quarter: 2014Q2

REPORT INFORMATION
  Report Type: Report from Study
  Country: US (occurrence: US)
  Receive Date: 20140508
  Receipt Date: 20140604
  Transmission Date: 20141212
  Serious: Yes (Other)
  Sender: FDA-Public Use
  Company Number: US-SA-2014SA057699

PATIENT
  Age: 65 Year
  Sex: Female
  Weight: 95.25 kg

DRUGS (11)
  1. LANTUS SOLOSTAR [Suspect]
     Indication: DIABETES MELLITUS
     Dosage: DOSE:66 UNIT(S)
     Route: 065
     Dates: start: 20050730
  2. SOLOSTAR [Concomitant]
     Indication: DEVICE THERAPY
  3. HUMALOG [Concomitant]
  4. METFORMIN [Concomitant]
  5. LEVOXYL [Concomitant]
  6. NOVOLOG [Concomitant]
  7. METOPROLOL [Concomitant]
  8. LASIX [Concomitant]
  9. PLAVIX [Concomitant]
  10. FERROUS SULFATE [Concomitant]
  11. LISINOPRIL W/HYDROCHLOROTHIAZIDE [Concomitant]

REACTIONS (2)
  - Sleep apnoea syndrome [Not Recovered/Not Resolved]
  - Drug administration error [Unknown]
